FAERS Safety Report 8866641 (Version 1)
Quarter: 2012Q4

REPORT INFORMATION
  Report Type: 
  Country: US (occurrence: US)
  Receive Date: 20121025
  Receipt Date: 20121025
  Transmission Date: 20130627
  Serious: No
  Sender: FDA-Public Use
  Company Number: US-AMGEN-USASP2012012951

PATIENT
  Age: 56 Year
  Sex: Male
  Weight: 81.63 kg

DRUGS (14)
  1. ENBREL [Suspect]
     Indication: PRODUCT USED FOR UNKNOWN INDICATION
     Dosage: 50 mg, qwk
     Route: 058
  2. PHENERGAN                          /00033001/ [Concomitant]
     Dosage: 25 mg, UNK
  3. SOMA [Concomitant]
     Dosage: 250 mg, UNK
  4. BENADRYL ALLERGY                   /00000402/ [Concomitant]
     Dosage: 25 mg, UNK
  5. ZYRTEC [Concomitant]
     Dosage: 5 mg, UNK
  6. LISINOPRIL [Concomitant]
     Dosage: 30 mg, UNK
  7. ZOFRAN                             /00955301/ [Concomitant]
     Dosage: 24 mg, UNK
  8. MAGNESIUM [Concomitant]
     Dosage: 30 mg, UNK
  9. NEXIUM                             /01479302/ [Concomitant]
     Dosage: 20 mg, UNK
  10. ALBUTEROL                          /00139501/ [Concomitant]
     Dosage: 2 mg, UNK
  11. VITAMIN B12                        /00056201/ [Concomitant]
     Dosage: 500 mug, UNK
  12. CLARITIN                           /00413701/ [Concomitant]
     Dosage: 10 mg, UNK
  13. TRAMADOL HCL [Concomitant]
     Dosage: 200 mg, UNK
  14. VYVANSE [Concomitant]
     Dosage: 20 mg, UNK

REACTIONS (1)
  - Bronchitis [Unknown]
